FAERS Safety Report 8325476-9 (Version None)
Quarter: 2012Q2

REPORT INFORMATION
  Report Type: 
  Country: None (occurrence: None)
  Receive Date: 20120501
  Receipt Date: 20120424
  Transmission Date: 20120825
  Serious: Yes (Other)
  Sender: FDA-Public Use
  Company Number: US-PFIZER INC-2012081081

PATIENT
  Sex: Female
  Weight: 52.608 kg

DRUGS (17)
  1. ZOSYN [Concomitant]
     Dosage: UNK
  2. CELEBREX [Concomitant]
     Indication: OSTEOARTHRITIS
     Dosage: 200 MG, 2X/DAY
  3. CHANTIX [Suspect]
     Dosage: UNK
     Route: 048
     Dates: start: 20120401, end: 20120401
  4. SINGULAIR [Concomitant]
     Indication: ASTHMA
     Dosage: 10 MG, 2X/DAY
  5. ZOCOR [Concomitant]
     Indication: BLOOD CHOLESTEROL INCREASED
     Dosage: 20 MG, DAILY
  6. CHANTIX [Suspect]
     Dosage: 0.5MG, UNK
     Route: 048
     Dates: start: 20120415, end: 20120401
  7. REMERON [Concomitant]
     Dosage: UNK
  8. SEROQUEL XR [Concomitant]
     Indication: ANXIETY
     Dosage: 300 MG, DAILY
  9. CHANTIX [Suspect]
     Indication: SMOKING CESSATION THERAPY
     Dosage: 0.5 MG, 1X/DAY
     Route: 048
     Dates: start: 20120316, end: 20120101
  10. EFFEXOR [Concomitant]
     Indication: DEPRESSION
     Dosage: 225 MG, DAILY
  11. AMITRIPTYLINE [Concomitant]
     Indication: GASTRIC DISORDER
     Dosage: 100 MG, DAILY
  12. CHANTIX [Suspect]
     Dosage: 1MG, UNK
     Route: 048
     Dates: start: 20120401
  13. SEROQUEL XR [Concomitant]
     Indication: SLEEP DISORDER
  14. SOMA [Concomitant]
     Dosage: UNK
  15. EFFEXOR [Concomitant]
     Indication: ANXIETY
  16. NEXIUM [Concomitant]
     Indication: GASTROOESOPHAGEAL REFLUX DISEASE
     Dosage: 40 MG, 2X/DAY
  17. ONDANSETRON [Concomitant]
     Dosage: 32 MG, DAILY

REACTIONS (6)
  - CONTUSION [None]
  - ABNORMAL BEHAVIOUR [None]
  - ABNORMAL SLEEP-RELATED EVENT [None]
  - FALL [None]
  - MEMORY IMPAIRMENT [None]
  - SOMNAMBULISM [None]
